FAERS Safety Report 9543333 (Version 7)
Quarter: 2014Q3

REPORT INFORMATION
  Report Type: Report from Study
  Country: KR (occurrence: KR)
  Receive Date: 20130923
  Receipt Date: 20140709
  Transmission Date: 20150326
  Serious: Yes (Hospitalization, Other)
  Sender: FDA-Public Use
  Company Number: KR-ABBVIE-13P-090-1148744-00

PATIENT
  Sex: Female

DRUGS (26)
  1. EMTRICITABINE W/TENOFOVIR [Concomitant]
     Active Substance: EMTRICITABINE\TENOFOVIR DISOPROXIL
     Dates: start: 20131010
  2. LEVOTUSS [Concomitant]
     Active Substance: LEVODROPROPIZINE
     Indication: COUGH
     Dosage: 180 MG DAILY
     Route: 048
     Dates: start: 20130906, end: 20131001
  3. POTASSIUM CHLORIDE. [Concomitant]
     Active Substance: POTASSIUM CHLORIDE
     Indication: PROPHYLAXIS
  4. CYMEVENE [Concomitant]
     Active Substance: GANCICLOVIR
     Indication: INFECTIOUS DISEASE CARRIER
     Route: 042
     Dates: start: 20130819, end: 20130824
  5. COTRIM [Concomitant]
     Active Substance: SULFAMETHOXAZOLE\TRIMETHOPRIM
     Indication: PROPHYLAXIS
  6. TENOFOVIR/EMTRICITABINE [Concomitant]
     Active Substance: EMTRICITABINE\TENOFOVIR
     Indication: ANTIRETROVIRAL THERAPY
     Dates: start: 20131010
  7. POTASSIUM CHLORIDE. [Concomitant]
     Active Substance: POTASSIUM CHLORIDE
     Indication: HYPOKALAEMIA
     Dates: start: 20131014, end: 20131014
  8. EMTRICITABINE W/TENOFOVIR [Concomitant]
     Active Substance: EMTRICITABINE\TENOFOVIR DISOPROXIL
     Indication: HIV INFECTION
     Dates: start: 20130819, end: 20130904
  9. LEVOTUSS [Concomitant]
     Active Substance: LEVODROPROPIZINE
     Indication: NASOPHARYNGITIS
  10. PAN-B COMP [Concomitant]
     Indication: HYPOVITAMINOSIS
  11. SOLONDO [Concomitant]
     Active Substance: PREDNISOLONE
     Indication: ENDOCRINE DISORDER
     Route: 048
     Dates: start: 20130819, end: 20130827
  12. CIMET [Concomitant]
     Indication: PEPTIC ULCER
     Route: 048
     Dates: start: 20130819, end: 20130903
  13. TAPOCIN [Concomitant]
     Indication: ANTIBIOTIC THERAPY
     Dosage: 200 MG DAILY
     Route: 042
     Dates: start: 20130909
  14. MEGACE F [Concomitant]
     Route: 048
     Dates: start: 20131013, end: 20131014
  15. EFAVIRENZ [Concomitant]
     Active Substance: EFAVIRENZ
     Indication: ANTIRETROVIRAL THERAPY
     Dates: start: 20131014
  16. KALETRA [Suspect]
     Active Substance: LOPINAVIR\RITONAVIR
     Dates: start: 20131010, end: 20131012
  17. COTRIM [Concomitant]
     Active Substance: SULFAMETHOXAZOLE\TRIMETHOPRIM
     Indication: INFECTION
     Route: 042
     Dates: start: 20130819, end: 20130824
  18. KALETRA [Suspect]
     Active Substance: LOPINAVIR\RITONAVIR
     Indication: HIV INFECTION
     Route: 048
     Dates: start: 20130819, end: 20130904
  19. SEPTRIN [Concomitant]
     Active Substance: SULFAMETHOXAZOLE\TRIMETHOPRIM
     Indication: INFLAMMATION
     Dosage: 1 TAB = 400/80MG
     Route: 048
     Dates: start: 20130826
  20. ESOMEZOLE [Concomitant]
     Indication: ULCER
     Route: 048
     Dates: start: 20130830, end: 20130903
  21. MAXIPIME [Concomitant]
     Active Substance: CEFEPIME HYDROCHLORIDE
     Indication: INFLAMMATION
     Route: 042
     Dates: start: 20130904, end: 20130918
  22. PAN-B COMP [Concomitant]
     Indication: VITAMIN SUPPLEMENTATION
     Route: 042
     Dates: start: 20131009, end: 20131010
  23. PAN-B COMP [Concomitant]
     Indication: PROPHYLAXIS
  24. CLAROMA [Concomitant]
     Indication: RESPIRATORY TRACT INFECTION
     Route: 048
     Dates: start: 20130904
  25. MEGACE F [Concomitant]
     Indication: DECREASED APPETITE
     Route: 048
     Dates: start: 20130917, end: 20131001
  26. MUTERAN [Concomitant]
     Indication: ANTITUSSIVE THERAPY
     Dosage: 600 MG DAILY
     Route: 048
     Dates: start: 20130920, end: 20131001

REACTIONS (16)
  - Pyrexia [Recovered/Resolved]
  - Immunodeficiency [Unknown]
  - Depressed mood [Not Recovered/Not Resolved]
  - Pruritus [Recovered/Resolved]
  - Nausea [Recovered/Resolved]
  - Asthenia [Recovered/Resolved]
  - Vomiting [Recovered/Resolved]
  - Vomiting [Recovered/Resolved]
  - Nausea [Recovered/Resolved]
  - Urinary tract infection [Recovering/Resolving]
  - Unevaluable event [Recovering/Resolving]
  - Hyponatraemia [Recovered/Resolved]
  - AIDS related complication [Unknown]
  - Pneumonia [Unknown]
  - Plantar erythema [Recovering/Resolving]
  - Pancytopenia [Recovered/Resolved]

NARRATIVE: CASE EVENT DATE: 20130821
